FAERS Safety Report 10286215 (Version 1)
Quarter: 2014Q3

REPORT INFORMATION
  Report Type: Spontaneous
  Country: US (occurrence: None)
  Receive Date: 20140707
  Receipt Date: 20140707
  Transmission Date: 20150326
  Serious: Yes (Other)
  Sender: FDA-Public Use
  Company Number: ADR-2014-01161

PATIENT
  Age: 51 Year
  Sex: Female

DRUGS (1)
  1. BACLOFEN. [Suspect]
     Active Substance: BACLOFEN
     Indication: MUSCLE SPASTICITY

REACTIONS (5)
  - Lethargy [None]
  - Scoliosis [None]
  - Body height decreased [None]
  - Condition aggravated [None]
  - Therapeutic response decreased [None]

NARRATIVE: CASE EVENT DATE: 20120914
